FAERS Safety Report 24794481 (Version 2)
Quarter: 2025Q1

REPORT INFORMATION
  Report Type: Report from Study
  Country: FR (occurrence: FR)
  Receive Date: 20241231
  Receipt Date: 20250108
  Transmission Date: 20250409
  Serious: No
  Sender: NOVARTIS
  Company Number: FR-002147023-NVSC2024FR245008

PATIENT
  Age: 42 Year
  Sex: Female

DRUGS (2)
  1. COSENTYX [Suspect]
     Active Substance: SECUKINUMAB
     Indication: Hidradenitis
     Dosage: 300 MG, Q4W
     Route: 058
     Dates: start: 20240920, end: 20241219
  2. COSENTYX [Suspect]
     Active Substance: SECUKINUMAB
     Dosage: 300 MG, Q4W
     Route: 058
     Dates: start: 20241212, end: 20241219

REACTIONS (3)
  - Tonsillitis [Recovered/Resolved]
  - Laryngitis [Recovered/Resolved]
  - Ear infection [Recovered/Resolved]

NARRATIVE: CASE EVENT DATE: 20240920
